APPROVED DRUG PRODUCT: SUCCINYLCHOLINE CHLORIDE
Active Ingredient: SUCCINYLCHOLINE CHLORIDE
Strength: 20MG/ML
Dosage Form/Route: INJECTABLE;INJECTION
Application: A213705 | Product #001
Applicant: ACCORD HEALTHCARE INC
Approved: May 20, 2020 | RLD: No | RS: No | Type: DISCN